FAERS Safety Report 5488001-6 (Version None)
Quarter: 2007Q4

REPORT INFORMATION
  Report Type: 
  Country: None (occurrence: None)
  Receive Date: 20071001
  Receipt Date: 20070706
  Transmission Date: 20080405
  Serious: Yes (Other)
  Sender: FDA-Public Use
  Company Number: 200713767GDS

PATIENT
  Age: 25 Year
  Sex: Female

DRUGS (1)
  1. CIPROFLOXACIN [Suspect]
     Indication: DRUG USE FOR UNKNOWN INDICATION
     Dosage: 1 G, TOTAL DAILY, ORAL
     Route: 048

REACTIONS (3)
  - COORDINATION ABNORMAL [None]
  - MANIA [None]
  - PSYCHOTIC DISORDER [None]
